FAERS Safety Report 19202816 (Version 1)
Quarter: 2021Q2

REPORT INFORMATION
  Report Type: Spontaneous
  Country: US (occurrence: US)
  Receive Date: 20210503
  Receipt Date: 20210503
  Transmission Date: 20210717
  Serious: No
  Sender: FDA-Public Use
  Company Number: US-AUROBINDO-AUR-APL-2021-007099

PATIENT
  Sex: Female

DRUGS (1)
  1. AZITHROMYCIN FOR ORAL SUSPENSION USP 200 MG/5ML [Suspect]
     Active Substance: AZITHROMYCIN
     Indication: INFECTION
     Dosage: 200 MILLIGRAM, ONCE A DAY
     Route: 048
     Dates: start: 20210213

REACTIONS (3)
  - Abdominal pain upper [Recovered/Resolved]
  - Abnormal behaviour [Recovered/Resolved]
  - Headache [Recovered/Resolved]

NARRATIVE: CASE EVENT DATE: 20210213
